FAERS Safety Report 24913963 (Version 2)
Quarter: 2025Q1

REPORT INFORMATION
  Report Type: Report from Study
  Country: GB (occurrence: GB)
  Receive Date: 20250202
  Receipt Date: 20250303
  Transmission Date: 20250408
  Serious: Yes (Other)
  Sender: NOVARTIS
  Company Number: GB-002147023-NVSC2024GB180788

PATIENT
  Age: 36 Year
  Sex: Female

DRUGS (2)
  1. KESIMPTA [Suspect]
     Active Substance: OFATUMUMAB
     Indication: Relapsing-remitting multiple sclerosis
     Dosage: 20 MG, QW (LOADING DOSES)
     Route: 058
     Dates: start: 20240830
  2. KESIMPTA [Suspect]
     Active Substance: OFATUMUMAB
     Indication: Multiple sclerosis
     Dosage: 20 MG, QMO
     Route: 058

REACTIONS (9)
  - Lower respiratory tract infection [Recovered/Resolved]
  - Influenza like illness [Recovered/Resolved with Sequelae]
  - Nasopharyngitis [Unknown]
  - Influenza like illness [Unknown]
  - Chest discomfort [Unknown]
  - Chills [Unknown]
  - Feeling hot [Unknown]
  - Rhinitis [Unknown]
  - Malaise [Unknown]
